FAERS Safety Report 4804033-2 (Version None)
Quarter: 2005Q4

REPORT INFORMATION
  Report Type: 
  Country: None (occurrence: None)
  Receive Date: 20051018
  Receipt Date: 20051018
  Transmission Date: 20060501
  Serious: Yes (Hospitalization, Disabling)
  Sender: FDA-Public Use
  Company Number: None

PATIENT
  Age: 84 Year
  Sex: Female
  Weight: 67 kg

DRUGS (11)
  1. DEPO-DUR 10 MG INJECTION (ENDO PHARMACEUTICAL) [Suspect]
     Indication: FEMUR FRACTURE
     Dosage: 10 MG EPIDURIAL
     Route: 008
     Dates: start: 20050726
  2. DEPO-DUR 10 MG INJECTION (ENDO PHARMACEUTICAL) [Suspect]
     Indication: POSTOPERATIVE ANALGESIA
     Dosage: 10 MG EPIDURIAL
     Route: 008
     Dates: start: 20050726
  3. NORVASC [Concomitant]
  4. OSCAL-D [Concomitant]
  5. CELEXA [Concomitant]
  6. ALLEGRA [Concomitant]
  7. HEPARIN [Concomitant]
  8. HYDROCHLOROTHIAZIDE [Concomitant]
  9. SYNTHROID [Concomitant]
  10. PROTONIX [Concomitant]
  11. COMBIVENT [Concomitant]

REACTIONS (6)
  - HYPOTENSION [None]
  - OEDEMA PERIPHERAL [None]
  - OLIGURIA [None]
  - RENAL FAILURE ACUTE [None]
  - RESPIRATORY DISTRESS [None]
  - TACHYCARDIA [None]
